FAERS Safety Report 4853762-3 (Version None)
Quarter: 2005Q4

REPORT INFORMATION
  Report Type: 
  Country: None (occurrence: None)
  Receive Date: 20051212
  Receipt Date: 20051202
  Transmission Date: 20060501
  Serious: Yes (Disabling, Other)
  Sender: FDA-Public Use
  Company Number: 2005141238

PATIENT
  Sex: Male
  Weight: 149.687 kg

DRUGS (7)
  1. GLUCOTROL XL [Suspect]
     Indication: DIABETES MELLITUS INADEQUATE CONTROL
     Dosage: 5 MG (5 MG, 1 IN 1 D)
     Dates: start: 19960101
  2. GLUCOPHAGE [Concomitant]
  3. ALL OTHER THERAPEUTIC PRODUCTS (ALL OTHER THERAPEUTIC PRODUCTS) [Concomitant]
  4. PRAVACHOL [Concomitant]
  5. RESTORIL [Concomitant]
  6. ASPIRIN [Concomitant]
  7. CLARITIN [Concomitant]

REACTIONS (9)
  - BACK INJURY [None]
  - BLOOD GLUCOSE FLUCTUATION [None]
  - BLOOD PRESSURE INCREASED [None]
  - CARDIAC FAILURE CONGESTIVE [None]
  - DISEASE PROGRESSION [None]
  - HEPATITIS C [None]
  - PAIN IN EXTREMITY [None]
  - PNEUMONIA [None]
  - TREATMENT NONCOMPLIANCE [None]
